FAERS Safety Report 26107324 (Version 1)
Quarter: 2025Q4

REPORT INFORMATION
  Report Type: Spontaneous
  Country: EU (occurrence: EU)
  Receive Date: 20251201
  Receipt Date: 20251201
  Transmission Date: 20260118
  Serious: Yes (Other)
  Sender: SANDOZ
  Company Number: EU-AMAROX PHARMA-AMR2025ES06763

PATIENT
  Age: 58 Year
  Sex: Male

DRUGS (1)
  1. CIPROFLOXACIN [Suspect]
     Active Substance: CIPROFLOXACIN
     Indication: Urinary tract infection
     Route: 065

REACTIONS (3)
  - Malignant catatonia [Recovering/Resolving]
  - Neuropsychological symptoms [Recovering/Resolving]
  - Condition aggravated [Recovering/Resolving]
